FAERS Safety Report 7423323-0 (Version None)
Quarter: 2011Q2

REPORT INFORMATION
  Report Type: 
  Country: None (occurrence: None)
  Receive Date: 20110419
  Receipt Date: 20110404
  Transmission Date: 20111010
  Serious: Yes (Hospitalization)
  Sender: FDA-Public Use
  Company Number: PHHY2010US41257

PATIENT
  Sex: Female

DRUGS (1)
  1. EXJADE [Suspect]
     Indication: MYELODYSPLASTIC SYNDROME
     Dosage: 500 MG, QOD
     Route: 048

REACTIONS (8)
  - APHAGIA [None]
  - DRUG INEFFECTIVE [None]
  - DIZZINESS [None]
  - INSOMNIA [None]
  - FULL BLOOD COUNT DECREASED [None]
  - FATIGUE [None]
  - APLASIA PURE RED CELL [None]
  - VOMITING [None]
